FAERS Safety Report 14128873 (Version 1)
Quarter: 2017Q4

REPORT INFORMATION
  Report Type: Spontaneous
  Country: UA (occurrence: UA)
  Receive Date: 20171026
  Receipt Date: 20171026
  Transmission Date: 20180321
  Serious: Yes (Other)
  Sender: FDA-Public Use
  Company Number: UA-GLAXOSMITHKLINE-UA2017GSK161044

PATIENT
  Age: 53 Year
  Sex: Male

DRUGS (4)
  1. SALBUTAMOL [Suspect]
     Active Substance: ALBUTEROL
     Indication: ASTHMA
  2. SERETIDE [Suspect]
     Active Substance: FLUTICASONE PROPIONATE\SALMETEROL XINAFOATE
     Indication: ASTHMA
     Dosage: 25.250 UNK, BID
     Route: 055
     Dates: start: 201611
  3. ALERON (LEVOCETIRIZIN) [Concomitant]
     Indication: ASTHMA
     Dosage: 5 MG, QD
     Route: 048
  4. SEREVENT DISKUS [Suspect]
     Active Substance: SALMETEROL XINAFOATE
     Indication: ASTHMA

REACTIONS (6)
  - Productive cough [Not Recovered/Not Resolved]
  - Neurone-specific enolase increased [Unknown]
  - Asthma [Unknown]
  - Cough [Unknown]
  - White blood cell count increased [Unknown]
  - Sputum purulent [Not Recovered/Not Resolved]

NARRATIVE: CASE EVENT DATE: 20170412
